FAERS Safety Report 16836723 (Version 1)
Quarter: 2019Q3

REPORT INFORMATION
  Report Type: Spontaneous
  Country: US (occurrence: US)
  Receive Date: 20190922
  Receipt Date: 20190922
  Transmission Date: 20191005
  Serious: No
  Sender: FDA-Public Use
  Company Number: US-SHIRE-US201930877

PATIENT
  Age: 63 Year
  Sex: Female

DRUGS (1)
  1. XIIDRA [Suspect]
     Active Substance: LIFITEGRAST
     Indication: DRY EYE
     Dosage: 1 GTT DROPS, 2X/DAY:BID
     Route: 047
     Dates: start: 20190513

REACTIONS (5)
  - Product quality issue [Unknown]
  - Anxiety [Not Recovered/Not Resolved]
  - Drug ineffective [Not Recovered/Not Resolved]
  - Emotional distress [Recovered/Resolved]
  - Product use complaint [Recovered/Resolved]

NARRATIVE: CASE EVENT DATE: 201908
